FAERS Safety Report 4882304-1 (Version None)
Quarter: 2006Q1

REPORT INFORMATION
  Report Type: 
  Country: None (occurrence: None)
  Receive Date: 20060117
  Receipt Date: 20051107
  Transmission Date: 20060701
  Serious: Yes (Hospitalization)
  Sender: FDA-Public Use
  Company Number: NZ-BOEHRINGER INGELHEIM PHARMACEUTICALS, INC.-2005-BP-19606AU

PATIENT
  Age: 58 Year
  Sex: Female

DRUGS (1)
  1. SPIRIVA [Suspect]

REACTIONS (1)
  - THERAPEUTIC PRODUCT INEFFECTIVE [None]
